FAERS Safety Report 5838915-X (Version None)
Quarter: 2008Q3

REPORT INFORMATION
  Report Type: 
  Country: None (occurrence: None)
  Receive Date: 20080808
  Receipt Date: 20080731
  Transmission Date: 20090109
  Serious: Yes (Hospitalization)
  Sender: FDA-Public Use
  Company Number: PHHY2008IT16317

PATIENT
  Sex: Male

DRUGS (9)
  1. TAREG [Suspect]
     Indication: CARDIOMYOPATHY
     Dosage: 80 MG DAILY
     Route: 048
     Dates: start: 20080303, end: 20080708
  2. TAREG [Suspect]
     Dosage: 40 MG /DAY
  3. CONGESCOR [Suspect]
     Indication: CARDIOMYOPATHY
     Dosage: 1.25 MG
     Route: 048
     Dates: start: 20080303, end: 20080708
  4. NITROCOR [Concomitant]
     Indication: CARDIOMYOPATHY
     Dosage: 1 POSOLOGIC UNIT
     Route: 062
  5. LASIX [Concomitant]
     Indication: CARDIOMYOPATHY
     Dosage: 1 POSOLOGIC UNIT
     Dates: start: 20080303, end: 20080708
  6. ALDACTONE [Concomitant]
     Indication: CARDIOMYOPATHY
     Dosage: 25 MG
     Route: 048
     Dates: start: 20080303, end: 20080708
  7. TORVAST [Concomitant]
     Indication: DYSLIPIDAEMIA
     Dosage: 20 MG
     Route: 048
     Dates: start: 20080303, end: 20080708
  8. NOVONORM [Concomitant]
     Indication: TYPE 2 DIABETES MELLITUS
     Dosage: 1.5 MG
     Route: 048
     Dates: start: 20070101, end: 20080708
  9. ASPIRIN [Concomitant]

REACTIONS (4)
  - ASTHENIA [None]
  - ATRIAL FIBRILLATION [None]
  - HYPOTENSION [None]
  - SYNCOPE [None]
